FAERS Safety Report 4776408-1 (Version None)
Quarter: 2005Q3

REPORT INFORMATION
  Report Type: 
  Country: None (occurrence: None)
  Receive Date: 20050921
  Receipt Date: 20050228
  Transmission Date: 20060218
  Serious: Yes (Hospitalization)
  Sender: FDA-Public Use
  Company Number: EWC050342953

PATIENT
  Age: 65 Year
  Sex: Female
  Weight: 62 kg

DRUGS (7)
  1. ALIMTA [Suspect]
     Dosage: 1530 MG
     Dates: start: 20050225
  2. CITALOPRAM HYDROBROMIDE [Concomitant]
  3. PROPAVAN (PROPIOMAZINE MALEATE) [Concomitant]
  4. DOLCONTIN (MORPHINE SULFATE) [Concomitant]
  5. ESUCOS (DIXYPRAZINE) [Concomitant]
  6. VITAMINERAL [Concomitant]
  7. ARTONIL (RANITIDINE HYDROCHLORIDE) [Concomitant]

REACTIONS (1)
  - VISUAL DISTURBANCE [None]
